FAERS Safety Report 24209325 (Version 1)
Quarter: 2024Q3

REPORT INFORMATION
  Report Type: Spontaneous
  Country: CN (occurrence: CN)
  Receive Date: 20240814
  Receipt Date: 20240814
  Transmission Date: 20241016
  Serious: Yes (Disabling)
  Sender: PFIZER
  Company Number: CN-PFIZER INC-PV202400104200

PATIENT
  Age: 34 Year
  Sex: Male
  Weight: 73 kg

DRUGS (7)
  1. METHYLPREDNISOLONE SODIUM SUCCINATE [Suspect]
     Active Substance: METHYLPREDNISOLONE SODIUM SUCCINATE
     Indication: Lupus encephalitis
     Dosage: 80 ML, 1X/DAY
     Route: 041
     Dates: start: 20230306, end: 20230310
  2. METHYLPREDNISOLONE SODIUM SUCCINATE [Suspect]
     Active Substance: METHYLPREDNISOLONE SODIUM SUCCINATE
     Dosage: 60 ML, 1X/DAY
     Route: 041
     Dates: start: 20230311, end: 20230320
  3. MEDROL [Suspect]
     Active Substance: METHYLPREDNISOLONE
     Indication: Lupus encephalitis
     Dosage: 60 MG, 1X/DAY
     Route: 048
     Dates: start: 20230321, end: 20230403
  4. PREDNISONE ACETATE [Suspect]
     Active Substance: PREDNISONE ACETATE
     Indication: Systemic lupus erythematosus
     Dosage: 12 DF, 1X/DAY
     Route: 048
     Dates: start: 20230404, end: 20240411
  5. PREDNISONE ACETATE [Suspect]
     Active Substance: PREDNISONE ACETATE
     Indication: Lupus encephalitis
     Dosage: 4 DF, 1X/DAY
     Route: 048
     Dates: start: 20240412, end: 20240415
  6. PREDNISONE ACETATE [Suspect]
     Active Substance: PREDNISONE ACETATE
     Dosage: 1 DF, 1X/DAY
     Route: 048
     Dates: start: 20240416, end: 20240723
  7. PREDNISONE ACETATE [Suspect]
     Active Substance: PREDNISONE ACETATE
     Dosage: 3 DF, 1X/DAY
     Route: 048
     Dates: start: 20240724, end: 20240807

REACTIONS (2)
  - Osteonecrosis [Unknown]
  - Off label use [Unknown]

NARRATIVE: CASE EVENT DATE: 20230306
